FAERS Safety Report 5531066-3 (Version None)
Quarter: 2007Q4

REPORT INFORMATION
  Report Type: 
  Country: None (occurrence: None)
  Receive Date: 20071130
  Receipt Date: 20071104
  Transmission Date: 20080405
  Serious: No
  Sender: FDA-Public Use
  Company Number: US-BOEHRINGER INGELHEIM PHARMACEUTICALS, INC.-2007-BP-23915BP

PATIENT
  Age: 44 Year
  Sex: Male

DRUGS (1)
  1. FLOMAX [Suspect]
     Indication: BLADDER NECK OBSTRUCTION
     Route: 048
     Dates: start: 20071103

REACTIONS (2)
  - DIZZINESS [None]
  - TOOTHACHE [None]
